FAERS Safety Report 5011595-1 (Version None)
Quarter: 2006Q2

REPORT INFORMATION
  Report Type: 
  Country: None (occurrence: None)
  Receive Date: 20060404
  Receipt Date: 20051103
  Transmission Date: 20061013
  Serious: No
  Sender: FDA-Public Use
  Company Number: USA0511112690

PATIENT
  Age: 56 Year
  Sex: Female
  Weight: 115.9 kg

DRUGS (3)
  1. CYMBALTA [Suspect]
     Indication: DEPRESSION
     Dosage: 60 MG , DAILY (1/D)
     Dates: start: 20051013
  2. MICARDIS [Concomitant]
  3. XALATAN [Concomitant]

REACTIONS (5)
  - DECREASED APPETITE [None]
  - FATIGUE [None]
  - GAIT DISTURBANCE [None]
  - INCREASED APPETITE [None]
  - MALAISE [None]
